FAERS Safety Report 13455216 (Version 1)
Quarter: 2017Q2

REPORT INFORMATION
  Report Type: Spontaneous
  Country: US (occurrence: US)
  Receive Date: 20170419
  Receipt Date: 20170419
  Transmission Date: 20170830
  Serious: Yes (Other)
  Sender: FDA-Public Use
  Company Number: US-WEST-WARD PHARMACEUTICALS CORP.-US-H14001-17-01091

PATIENT
  Age: 36 Year
  Sex: Female

DRUGS (1)
  1. DIGOXIN. [Suspect]
     Active Substance: DIGOXIN
     Indication: PRODUCT USED FOR UNKNOWN INDICATION
     Route: 037

REACTIONS (9)
  - Wrong drug administered [Recovering/Resolving]
  - Unresponsive to stimuli [Recovering/Resolving]
  - Spinal cord injury [Recovering/Resolving]
  - Spinal cord ischaemia [Recovering/Resolving]
  - Demyelination [Recovering/Resolving]
  - Disorientation [Recovering/Resolving]
  - Paralysis [Recovering/Resolving]
  - Myelitis [Recovering/Resolving]
  - Exposure during pregnancy [Unknown]
